FAERS Safety Report 11395165 (Version 1)
Quarter: 2015Q3

REPORT INFORMATION
  Report Type: Other
  Country: US (occurrence: US)
  Receive Date: 20150819
  Receipt Date: 20150819
  Transmission Date: 20151125
  Serious: Yes (Other)
  Sender: FDA-Public Use
  Company Number: US-SHIRE-US201509990

PATIENT
  Age: 66 Year
  Sex: Male

DRUGS (2)
  1. CINRYZE [Suspect]
     Active Substance: HUMAN C1-ESTERASE INHIBITOR
     Indication: PROPHYLAXIS
     Dosage: UNK, AS REQ^D
     Route: 042
     Dates: start: 201507
  2. CINRYZE [Suspect]
     Active Substance: HUMAN C1-ESTERASE INHIBITOR
     Indication: HEREDITARY ANGIOEDEMA
     Dosage: 1000 UNITS, OTHER(Q 4 DAYS)
     Route: 042
     Dates: start: 20150422

REACTIONS (5)
  - Pancreatitis [Unknown]
  - Abdominal discomfort [Unknown]
  - Gait disturbance [Unknown]
  - Hereditary angioedema [Unknown]
  - Product use issue [Not Recovered/Not Resolved]

NARRATIVE: CASE EVENT DATE: 201507
